FAERS Safety Report 23863771 (Version 1)
Quarter: 2024Q2

REPORT INFORMATION
  Report Type: Spontaneous
  Country: US (occurrence: None)
  Receive Date: 20240516
  Receipt Date: 20240516
  Transmission Date: 20240716
  Serious: Yes (Hospitalization)
  Sender: FDA-Public Use
  Company Number: None

PATIENT
  Age: 79 Year
  Sex: Female
  Weight: 63.1 kg

DRUGS (3)
  1. CARBOPLATIN [Suspect]
     Active Substance: CARBOPLATIN
     Dates: end: 20240511
  2. ALIMTA [Suspect]
     Active Substance: PEMETREXED DISODIUM
     Dates: end: 20240411
  3. aspirin [Concomitant]

REACTIONS (11)
  - Confusional state [None]
  - Somnolence [None]
  - Asthenia [None]
  - Chest pain [None]
  - Hypophagia [None]
  - Hypoxia [None]
  - Atrial fibrillation [None]
  - Pneumonia [None]
  - Urinary tract infection [None]
  - Troponin increased [None]
  - Ischaemic stroke [None]

NARRATIVE: CASE EVENT DATE: 20240429
